FAERS Safety Report 7602905-7 (Version None)
Quarter: 2011Q3

REPORT INFORMATION
  Report Type: 
  Country: None (occurrence: None)
  Receive Date: 20110701
  Receipt Date: 20110621
  Transmission Date: 20111222
  Serious: Yes (Other)
  Sender: FDA-Public Use
  Company Number: 1000021858

PATIENT
  Age: 55 Year
  Sex: Female

DRUGS (1)
  1. NEBIVOLOL HCL [Suspect]
     Dosage: ORAL
     Route: 048

REACTIONS (1)
  - CYTOLYTIC HEPATITIS [None]
